FAERS Safety Report 6425476-X (Version None)
Quarter: 2009Q4

REPORT INFORMATION
  Report Type: 
  Country: None (occurrence: None)
  Receive Date: 20091103
  Receipt Date: 20091026
  Transmission Date: 20100525
  Serious: Yes (Other)
  Sender: FDA-Public Use
  Company Number: GB-PFIZER INC-2009233906

PATIENT
  Age: 23 Year
  Sex: Female
  Weight: 63 kg

DRUGS (1)
  1. CHAMPIX [Suspect]
     Indication: SMOKING CESSATION THERAPY
     Dosage: 0.5 MG, 2X/DAY
     Dates: start: 20090515, end: 20090617

REACTIONS (9)
  - ANXIETY [None]
  - DEPRESSION [None]
  - DIARRHOEA [None]
  - INSOMNIA [None]
  - PALPITATIONS [None]
  - PHOTOPHOBIA [None]
  - STRESS [None]
  - SUICIDAL IDEATION [None]
  - VOMITING [None]
